FAERS Safety Report 21047147 (Version 5)
Quarter: 2025Q1

REPORT INFORMATION
  Report Type: Report from Study
  Country: DE (occurrence: DE)
  Receive Date: 20220706
  Receipt Date: 20250225
  Transmission Date: 20250409
  Serious: Yes (Hospitalization, Disabling, Other)
  Sender: BIOCON
  Company Number: DE-MYLANLABS-2022M1049839

PATIENT

DRUGS (11)
  1. HULIO [Suspect]
     Active Substance: ADALIMUMAB-FKJP
     Indication: Axial spondyloarthritis
     Dosage: 40 MILLIGRAM, Q2W
     Route: 065
     Dates: start: 20190717, end: 20220228
  2. HULIO [Suspect]
     Active Substance: ADALIMUMAB-FKJP
     Route: 065
     Dates: start: 20190717
  3. HULIO [Suspect]
     Active Substance: ADALIMUMAB-FKJP
     Dosage: 40 MILLIGRAM, Q3W
     Route: 065
     Dates: start: 20220309, end: 20220504
  4. HULIO [Suspect]
     Active Substance: ADALIMUMAB-FKJP
     Dosage: 40 MILLIGRAM, Q2W
     Route: 065
     Dates: start: 20220504
  5. HULIO [Suspect]
     Active Substance: ADALIMUMAB-FKJP
     Dosage: 40 MILLIGRAM, Q2W (AS DIRECTED)
     Route: 065
     Dates: start: 20230815
  6. ATORVASTATIN [Concomitant]
     Active Substance: ATORVASTATIN
     Indication: Product used for unknown indication
     Route: 065
     Dates: start: 20220228, end: 20220504
  7. ASPIRIN [Concomitant]
     Active Substance: ASPIRIN
     Indication: Product used for unknown indication
     Route: 065
     Dates: start: 20220228, end: 20220504
  8. KALYMIN [MANGANESE BROMIDE;PYRIDOSTIGMINE BROMIDE] [Concomitant]
     Indication: Product used for unknown indication
     Dosage: 60 MG, TID
     Route: 065
  9. PREDNISOLONE [Concomitant]
     Active Substance: PREDNISOLONE
     Indication: Product used for unknown indication
     Route: 065
  10. COTRIM [Concomitant]
     Active Substance: SULFAMETHOXAZOLE\TRIMETHOPRIM
     Indication: Product used for unknown indication
     Route: 065
  11. CHOLECALCIFEROL [Concomitant]
     Active Substance: CHOLECALCIFEROL
     Indication: Product used for unknown indication
     Route: 065

REACTIONS (3)
  - Facial paresis [Recovered/Resolved]
  - Myasthenia gravis [Not Recovered/Not Resolved]
  - Brain stem infarction [Recovered/Resolved]

NARRATIVE: CASE EVENT DATE: 20220224
